FAERS Safety Report 19998224 (Version 4)
Quarter: 2022Q1

REPORT INFORMATION
  Report Type: Report from Study
  Country: ES (occurrence: ES)
  Receive Date: 20211026
  Receipt Date: 20220121
  Transmission Date: 20220423
  Serious: Yes (Hospitalization)
  Sender: FDA-Public Use
  Company Number: ES-CELGENE-ESP-20210706767

PATIENT
  Age: 49 Year
  Sex: Male
  Weight: 67.7 kg

DRUGS (45)
  1. LISOCABTAGENE MARALEUCEL [Suspect]
     Active Substance: LISOCABTAGENE MARALEUCEL
     Indication: B-cell lymphoma
     Dosage: 1 X 10^8  CAR + T CELLS
     Route: 041
     Dates: start: 20210713, end: 20210713
  2. FLUDARABINE [Suspect]
     Active Substance: FLUDARABINE PHOSPHATE
     Indication: B-cell lymphoma
     Dosage: 52.47 MILLIGRAM
     Route: 041
     Dates: start: 20210707, end: 20210709
  3. CYCLOPHOSPHAMIDE [Suspect]
     Active Substance: CYCLOPHOSPHAMIDE
     Indication: B-cell lymphoma
     Route: 065
     Dates: end: 20210426
  4. CYCLOPHOSPHAMIDE [Suspect]
     Active Substance: CYCLOPHOSPHAMIDE
     Dosage: 524.7 MILLIGRAM
     Route: 041
     Dates: start: 20210707, end: 20210709
  5. METHADONE [Suspect]
     Active Substance: METHADONE HYDROCHLORIDE
     Indication: Cancer pain
     Dosage: CONTINUOUS
     Route: 041
     Dates: start: 20210721
  6. METHADONE [Suspect]
     Active Substance: METHADONE HYDROCHLORIDE
     Dosage: 24.6 MILLIGRAM
     Route: 058
     Dates: start: 20210802
  7. ASPIRIN [Concomitant]
     Active Substance: ASPIRIN
     Indication: Anticoagulant therapy
     Dosage: 100 MILLIGRAM
     Route: 048
  8. OMEPRAZOLE [Concomitant]
     Active Substance: OMEPRAZOLE
     Indication: Gastrointestinal disorder prophylaxis
     Dosage: 20 MILLIGRAM
     Route: 048
  9. ENALAPRIL [Concomitant]
     Active Substance: ENALAPRIL
     Indication: Hypertension
     Dosage: 20 MILLIGRAM
     Route: 048
  10. ALLOPURINOL [Concomitant]
     Active Substance: ALLOPURINOL
     Indication: Prophylaxis
     Dosage: 100 MILLIGRAM
     Route: 048
  11. ACYCLOVIR [Concomitant]
     Active Substance: ACYCLOVIR
     Indication: Antiviral prophylaxis
     Dosage: 800 MILLIGRAM
     Route: 048
  12. PREGABALIN [Concomitant]
     Active Substance: PREGABALIN
     Indication: Back pain
     Dosage: 200 MILLIGRAM
     Route: 048
  13. SULFAMETHOXAZOLE\TRIMETHOPRIM [Concomitant]
     Active Substance: SULFAMETHOXAZOLE\TRIMETHOPRIM
     Indication: Antibiotic prophylaxis
     Dosage: 160/800 MG
     Route: 048
  14. DIAZEPAM [Concomitant]
     Active Substance: DIAZEPAM
     Indication: Prophylaxis
     Dosage: 10 MILLIGRAM
     Route: 048
  15. DIAZEPAM [Concomitant]
     Active Substance: DIAZEPAM
     Indication: Nervousness
     Dosage: 10 MILLIGRAM
     Route: 048
  16. DEXKETOPROFEN TROMETAMOL [Concomitant]
     Active Substance: DEXKETOPROFEN TROMETAMOL
     Indication: Back pain
     Route: 048
  17. FENTANYL CITRATE [Concomitant]
     Active Substance: FENTANYL CITRATE
     Indication: Back pain
     Dosage: 600 MICROGRAM
     Route: 048
     Dates: start: 20210707
  18. FENTANYL CITRATE [Concomitant]
     Active Substance: FENTANYL CITRATE
     Route: 048
     Dates: start: 20210715
  19. MORPHINE [Concomitant]
     Active Substance: MORPHINE
     Indication: Back pain
     Route: 048
  20. MST [Concomitant]
     Indication: Back pain
     Route: 048
  21. MST [Concomitant]
     Route: 048
     Dates: start: 20210717
  22. ASPIRIN [Concomitant]
     Active Substance: ASPIRIN
     Indication: Myocardial infarction
     Dosage: 100 MILLIGRAM
     Route: 048
     Dates: start: 202106
  23. ASPIRIN [Concomitant]
     Active Substance: ASPIRIN
     Indication: Cerebral infarction
  24. MAGNESIUM HYDROXIDE [Concomitant]
     Active Substance: MAGNESIUM HYDROXIDE
     Indication: Constipation prophylaxis
     Route: 048
  25. ACETAMINOPHEN [Concomitant]
     Active Substance: ACETAMINOPHEN
     Indication: Prophylaxis
     Route: 048
     Dates: start: 20210713
  26. ACETAMINOPHEN [Concomitant]
     Active Substance: ACETAMINOPHEN
     Indication: Prophylaxis
     Route: 048
  27. POLARAMINE [Concomitant]
     Active Substance: DEXCHLORPHENIRAMINE MALEATE
     Indication: Prophylaxis
     Route: 041
     Dates: start: 20210713
  28. Senosid B [Concomitant]
     Indication: Constipation
     Dosage: 30 MILLIGRAM/MILLILITERS
     Route: 041
     Dates: start: 20210715
  29. OXYBUTYNIN [Concomitant]
     Active Substance: OXYBUTYNIN
     Indication: Micturition disorder
     Dosage: 5 MILLIGRAM
     Route: 048
     Dates: start: 20210716
  30. Nolotil [Concomitant]
     Indication: Back pain
     Route: 041
     Dates: start: 20210708
  31. ONDANSETRON [Concomitant]
     Active Substance: ONDANSETRON
     Indication: Prophylaxis of nausea and vomiting
     Route: 048
     Dates: start: 20210712
  32. FUROSEMIDE [Concomitant]
     Active Substance: FUROSEMIDE
     Indication: Fluid imbalance
     Route: 041
  33. FUROSEMIDE [Concomitant]
     Active Substance: FUROSEMIDE
     Route: 041
  34. BUSCAPINA [Concomitant]
     Indication: Micturition disorder
     Route: 048
     Dates: start: 20210719
  35. TAMSULOSIN HYDROCHLORIDE [Concomitant]
     Active Substance: TAMSULOSIN HYDROCHLORIDE
     Indication: Micturition disorder
     Dosage: .4 MILLIGRAM
     Route: 048
     Dates: start: 20210719
  36. MORPHINE HYDROCHLORIDE [Concomitant]
     Active Substance: MORPHINE HYDROCHLORIDE
     Indication: Back pain
     Route: 041
     Dates: start: 20210720, end: 20210720
  37. MORPHINE HYDROCHLORIDE [Concomitant]
     Active Substance: MORPHINE HYDROCHLORIDE
     Route: 041
     Dates: start: 20210721, end: 20210721
  38. MORPHINE HYDROCHLORIDE [Concomitant]
     Active Substance: MORPHINE HYDROCHLORIDE
     Route: 041
     Dates: start: 20210723, end: 20210723
  39. Piperaciline/Tazobactam [Concomitant]
     Indication: Antibiotic prophylaxis
     Dosage: 16 MILLIGRAM
     Route: 048
  40. POSACONAZOLE [Concomitant]
     Active Substance: POSACONAZOLE
     Indication: Antifungal prophylaxis
     Dosage: 300 MILLIGRAM
     Route: 048
  41. FILGRASTIM [Concomitant]
     Active Substance: FILGRASTIM
     Indication: Prophylaxis
     Route: 048
  42. GRANULOCYTE COLONY-STIMULATING FACTOR NOS [Concomitant]
     Active Substance: GRANULOCYTE COLONY-STIMULATING FACTOR NOS
     Indication: Prophylaxis
     Route: 058
  43. Primperam [Concomitant]
     Indication: Prophylaxis of nausea and vomiting
     Route: 041
  44. TOCILIZUMAB [Concomitant]
     Active Substance: TOCILIZUMAB
     Indication: Cytokine release syndrome
     Route: 041
     Dates: start: 20210721, end: 20210721
  45. LEVETIRACETAM [Concomitant]
     Active Substance: LEVETIRACETAM
     Indication: Prophylaxis
     Route: 065

REACTIONS (1)
  - Neurotoxicity [Recovered/Resolved]

NARRATIVE: CASE EVENT DATE: 20210723
